FAERS Safety Report 8644161 (Version 4)
Quarter: 2013Q2

REPORT INFORMATION
  Report Type: Spontaneous
  Country: JP (occurrence: JP)
  Receive Date: 20120629
  Receipt Date: 20130501
  Transmission Date: 20140414
  Serious: Yes (Hospitalization)
  Sender: FDA-Public Use
  Company Number: JP-PFIZER INC-2012153560

PATIENT
  Age: 24 Year
  Sex: Female
  Weight: 50 kg

DRUGS (8)
  1. FOSPHENYTOIN SODIUM [Suspect]
     Indication: EPILEPSY
     Dosage: 1125 MG, 1X/DAY
     Route: 042
     Dates: start: 20120618, end: 20120618
  2. FOSPHENYTOIN SODIUM [Suspect]
     Dosage: 180 MG, 1X/DAY
     Route: 042
     Dates: start: 20120619, end: 20120619
  3. PHENYTOIN [Suspect]
     Indication: STATUS EPILEPTICUS
     Dosage: 250 MG, 1X/DAY
     Route: 042
     Dates: start: 20120618
  4. CARBAMAZEPINE [Concomitant]
     Indication: PROPHYLAXIS
     Dosage: 500 MG, UNK
     Route: 048
     Dates: end: 20120615
  5. CARBAMAZEPINE [Concomitant]
     Dosage: 500 MG, UNK
     Route: 048
     Dates: start: 20120619
  6. LEVODOPA [Concomitant]
     Indication: PROPHYLAXIS
     Dosage: 49.25 MG, UNK
     Route: 048
     Dates: end: 20120615
  7. LEVODOPA [Concomitant]
     Dosage: 49.25 MG, UNK
     Route: 048
     Dates: start: 20120619
  8. RISPERIDONE [Concomitant]
     Dosage: 0.8 MG, UNK
     Route: 048
     Dates: end: 20120615

REACTIONS (1)
  - Rhabdomyolysis [Recovering/Resolving]
